FAERS Safety Report 17059894 (Version 1)
Quarter: 2019Q4

REPORT INFORMATION
  Report Type: Spontaneous
  Country: US (occurrence: US)
  Receive Date: 20191121
  Receipt Date: 20191121
  Transmission Date: 20200122
  Serious: No
  Sender: FDA-Public Use
  Company Number: US-NOVOPROD-663366

PATIENT
  Age: 36 Year
  Sex: Male

DRUGS (1)
  1. NOVOLOG [Suspect]
     Active Substance: INSULIN ASPART
     Indication: DIABETES MELLITUS
     Dosage: UNK
     Route: 058

REACTIONS (5)
  - Blood glucose increased [Unknown]
  - Nausea [Unknown]
  - Product quality issue [Unknown]
  - Vomiting [Unknown]
  - Headache [Unknown]

NARRATIVE: CASE EVENT DATE: 20190511
